FAERS Safety Report 7861875-7 (Version None)
Quarter: 2011Q4

REPORT INFORMATION
  Report Type: 
  Country: None (occurrence: None)
  Receive Date: 20111027
  Receipt Date: 20101116
  Transmission Date: 20120403
  Serious: No
  Sender: FDA-Public Use
  Company Number: US-AMGEN-USASP2010005519

PATIENT
  Age: 59 Year
  Sex: Female

DRUGS (1)
  1. ENBREL [Suspect]
     Indication: RHEUMATOID ARTHRITIS
     Dates: start: 20021029

REACTIONS (5)
  - RHEUMATOID ARTHRITIS [None]
  - NEUROMA [None]
  - FOOT OPERATION [None]
  - ABASIA [None]
  - IMPAIRED HEALING [None]
